FAERS Safety Report 6243857-4 (Version None)
Quarter: 2009Q2

REPORT INFORMATION
  Report Type: 
  Country: None (occurrence: None)
  Receive Date: 20090623
  Receipt Date: 20090610
  Transmission Date: 20091009
  Serious: Yes (Hospitalization)
  Sender: FDA-Public Use
  Company Number: 238856J08USA

PATIENT
  Age: 56 Year
  Sex: Female

DRUGS (7)
  1. REBIF [Suspect]
     Indication: MULTIPLE SCLEROSIS
     Dosage: 44 MCG, 3 IN 1 WEEKS, SUBCUTANEOUS
     Route: 058
     Dates: start: 20021111
  2. DIOVAN [Concomitant]
  3. BACLOFEN [Concomitant]
  4. LEXAPRO [Concomitant]
  5. ZANTAC 150 [Concomitant]
  6. COUMADIN [Concomitant]
  7. URECHOLINE [Concomitant]

REACTIONS (2)
  - CATHETER RELATED COMPLICATION [None]
  - URINARY TRACT INFECTION [None]
